FAERS Safety Report 9039663 (Version 1)
Quarter: 2013Q1

REPORT INFORMATION
  Report Type: Report from Study
  Country: US (occurrence: US)
  Receive Date: 20130129
  Receipt Date: 20130129
  Transmission Date: 20140127
  Serious: Yes (Other)
  Sender: FDA-Public Use
  Company Number: US-ABBOTT-12P-163-0918709-00

PATIENT
  Sex: Female
  Weight: 83.54 kg

DRUGS (2)
  1. HUMIRA 40 MG/0.8 ML PEN [Suspect]
     Indication: RHEUMATOID ARTHRITIS
     Route: 058
     Dates: start: 20110103, end: 201110
  2. HUMIRA 40 MG/0.8 ML PEN [Suspect]
     Route: 058
     Dates: start: 201203

REACTIONS (3)
  - Pain [Recovered/Resolved]
  - Rheumatoid arthritis [Recovered/Resolved]
  - Joint swelling [Not Recovered/Not Resolved]
